FAERS Safety Report 18954235 (Version 8)
Quarter: 2024Q1

REPORT INFORMATION
  Report Type: Spontaneous
  Country: US (occurrence: US)
  Receive Date: 20210301
  Receipt Date: 20240226
  Transmission Date: 20240410
  Serious: Yes (Other)
  Sender: FDA-Public Use
  Company Number: US-PFIZER INC-2021187865

PATIENT
  Age: 71 Year
  Sex: Female
  Weight: 60.49 kg

DRUGS (8)
  1. IBRANCE [Suspect]
     Active Substance: PALBOCICLIB
     Indication: Breast cancer female
     Dosage: 125 MG, CYCLIC (1 CAP DAILY ORAL DAY 1-21, FOLLOWED BY 7 DAY)/125MG ONCE A DAY 21 DAYS ON 7 DAYS OFF
     Route: 048
     Dates: start: 20201118
  2. IBRANCE [Suspect]
     Active Substance: PALBOCICLIB
     Indication: Breast cancer metastatic
     Dosage: 100 MG ONCE A DAY 21 ON 7 OFF
     Route: 048
     Dates: start: 202101, end: 202106
  3. IBRANCE [Suspect]
     Active Substance: PALBOCICLIB
     Dosage: 75 MG
     Dates: start: 20210621
  4. IBRANCE [Suspect]
     Active Substance: PALBOCICLIB
     Dosage: 1 CAPSULE DAILY ORAL DAYS 1-21, FOLLOWED BY 7 DAYS
     Route: 048
     Dates: start: 20210630
  5. IBRANCE [Suspect]
     Active Substance: PALBOCICLIB
     Dosage: 75 MG ONCE A DAY 21 ON 7 OFF
     Route: 048
  6. LETROZOLE [Concomitant]
     Active Substance: LETROZOLE
     Dosage: UNK
     Dates: start: 202011
  7. CALCIUM [Concomitant]
     Active Substance: CALCIUM
     Dosage: 600 MG X 2 DAILY
  8. TYLENOL [Concomitant]
     Active Substance: ACETAMINOPHEN
     Dosage: ON A AS NEED BASIS

REACTIONS (4)
  - Neutropenia [Recovered/Resolved]
  - Immune system disorder [Recovered/Resolved]
  - Tumour marker increased [Unknown]
  - Back pain [Not Recovered/Not Resolved]

NARRATIVE: CASE EVENT DATE: 20201101
